FAERS Safety Report 9717067 (Version 1)
Quarter: 2013Q4

REPORT INFORMATION
  Report Type: Spontaneous
  Country: US (occurrence: US)
  Receive Date: 20131127
  Receipt Date: 20131127
  Transmission Date: 20140711
  Serious: No
  Sender: FDA-Public Use
  Company Number: US-GILEAD-2009-0020748

PATIENT
  Age: 72 Year
  Sex: Female

DRUGS (9)
  1. LETAIRIS [Suspect]
     Route: 048
  2. CYTOXAN [Concomitant]
  3. LASIX [Concomitant]
  4. PREDNISONE [Concomitant]
  5. ACIPHEX [Concomitant]
  6. KLOR-CON [Concomitant]
  7. SPIRONOLACTONE [Concomitant]
  8. CITALOPRAM [Concomitant]
  9. COLACE [Concomitant]

REACTIONS (1)
  - Hepatic enzyme increased [Recovered/Resolved]
